FAERS Safety Report 7572130-7 (Version None)
Quarter: 2011Q2

REPORT INFORMATION
  Report Type: 
  Country: None (occurrence: None)
  Receive Date: 20110624
  Receipt Date: 20110610
  Transmission Date: 20111010
  Serious: Yes (Hospitalization, Other)
  Sender: FDA-Public Use
  Company Number: JP-CELGENEUS-087-50794-11062086

PATIENT
  Sex: Male

DRUGS (22)
  1. ADEROXAL [Concomitant]
     Dosage: 1.2 GRAM
     Route: 048
     Dates: start: 20110316
  2. LEVOFLOXACIN [Concomitant]
     Dosage: 500 GRAM
     Route: 048
     Dates: start: 20110316, end: 20110513
  3. GRAN [Concomitant]
     Dosage: 75 MICROGRAM
     Route: 051
     Dates: start: 20110417, end: 20110417
  4. ALFAROL [Concomitant]
     Dosage: 1 MICROGRAM
     Route: 048
     Dates: start: 20110316
  5. ALOXI [Concomitant]
     Dosage: .75 MILLIGRAM
     Route: 051
     Dates: start: 20110319, end: 20110319
  6. VIDAZA [Suspect]
     Dosage: 100 MILLIGRAM
     Route: 058
     Dates: start: 20110517, end: 20110523
  7. LANSOPRAZOLE [Concomitant]
     Dosage: 15 MILLIGRAM
     Route: 048
     Dates: start: 20110316
  8. MAGNESIUM OXIDE [Concomitant]
     Dosage: 990 MILLIGRAM
     Route: 048
     Dates: start: 20110316
  9. SULFAMETHOXAZOLE [Concomitant]
     Dosage: 1 DOSAGE FORMS
     Route: 065
     Dates: start: 20110316
  10. GRAN [Concomitant]
     Dosage: 75 MICROGRAM
     Route: 051
     Dates: start: 20110501, end: 20110501
  11. VIDAZA [Suspect]
     Dosage: 100 MILLIGRAM
     Route: 058
     Dates: start: 20110316, end: 20110322
  12. ZOLPIDEM [Concomitant]
     Dosage: 10 MILLIGRAM
     Route: 048
     Dates: start: 20110316
  13. ALOXI [Concomitant]
     Dosage: .75 MILLIGRAM
     Route: 051
     Dates: start: 20110316, end: 20110316
  14. ALOXI [Concomitant]
     Dosage: .75 MILLIGRAM
     Route: 051
     Dates: start: 20110422, end: 20110422
  15. VIDAZA [Suspect]
     Dosage: 100 MILLIGRAM
     Route: 058
     Dates: start: 20110413, end: 20110419
  16. GASMOTIN [Concomitant]
     Dosage: 15 MILLIGRAM
     Route: 048
     Dates: start: 20110316
  17. GLAKAY [Concomitant]
     Route: 048
     Dates: start: 20110316
  18. NEUTROGIN [Concomitant]
     Dosage: 100 MICROGRAM
     Route: 051
     Dates: start: 20110407, end: 20110407
  19. ITRACONAZOLE [Concomitant]
     Dosage: 100 MILLIGRAM
     Route: 048
     Dates: start: 20110316
  20. ALOXI [Concomitant]
     Dosage: .75 MILLIGRAM
     Route: 051
     Dates: start: 20110419, end: 20110419
  21. GRAN [Concomitant]
     Dosage: 75 MICROGRAM
     Route: 051
     Dates: start: 20110511, end: 20110511
  22. FRESMIN-S [Concomitant]
     Dosage: 1 MILLIGRAM
     Route: 051
     Dates: start: 20110406, end: 20110406

REACTIONS (8)
  - SUPRAVENTRICULAR EXTRASYSTOLES [None]
  - INJECTION SITE REACTION [None]
  - PLATELET COUNT DECREASED [None]
  - GINGIVITIS [None]
  - BLOOD POTASSIUM INCREASED [None]
  - ANAEMIA [None]
  - BLOOD CREATININE INCREASED [None]
  - NEUTROPHIL COUNT DECREASED [None]
